FAERS Safety Report 8698682 (Version 2)
Quarter: 2012Q4

REPORT INFORMATION
  Report Type: 
  Country: US (occurrence: US)
  Receive Date: 20120802
  Receipt Date: 20120927
  Transmission Date: 20130627
  Serious: Yes (Other)
  Sender: FDA-Public Use
  Company Number: US-PFIZER INC-2012186010

PATIENT
  Age: 47 Year
  Sex: Female
  Weight: 88.44 kg

DRUGS (12)
  1. LYRICA [Suspect]
     Indication: FIBROMYALGIA
     Dosage: UNK, 1x/day
     Route: 048
     Dates: start: 201105, end: 20110517
  2. LYRICA [Suspect]
     Indication: PAIN
     Dosage: UNK
     Route: 048
     Dates: start: 20110518, end: 20110527
  3. GABAPENTIN [Suspect]
     Indication: FIBROMYALGIA
     Dosage: 300 mg, 3x/day
     Route: 048
     Dates: start: 201105
  4. GABAPENTIN [Suspect]
     Indication: PAIN
     Dosage: 300 mg twice a day + 2x300mg at night
     Dates: end: 201112
  5. GABAPENTIN [Suspect]
     Dosage: 300/300
     Route: 048
     Dates: start: 20110629
  6. GABAPENTIN [Suspect]
     Dosage: 300/300/300
     Route: 048
     Dates: start: 20110824
  7. GABAPENTIN [Suspect]
     Dosage: 300/300/600
     Route: 048
     Dates: start: 20110901, end: 20110907
  8. ASPIRIN [Concomitant]
     Dosage: UNK
  9. LISINOPRIL [Concomitant]
     Dosage: UNK
  10. OMEPRAZOLE [Concomitant]
     Dosage: 20 mg, UNK
  11. CITALOPRAM [Concomitant]
     Dosage: 20 mg, UNK
  12. ATENOLOL [Concomitant]
     Dosage: 50 mg, UNK

REACTIONS (10)
  - Memory impairment [Recovered/Resolved]
  - Gait disturbance [Recovered/Resolved]
  - Speech disorder [Recovered/Resolved]
  - Hypersensitivity [Recovered/Resolved]
  - Rash [Recovered/Resolved]
  - Pruritus [Recovered/Resolved]
  - Lip swelling [Recovered/Resolved]
  - Dizziness [Recovered/Resolved]
  - Nausea [Recovered/Resolved]
  - Somnolence [Unknown]
